FAERS Safety Report 25357475 (Version 1)
Quarter: 2025Q2

REPORT INFORMATION
  Report Type: Spontaneous
  Country: US (occurrence: US)
  Receive Date: 20250526
  Receipt Date: 20250526
  Transmission Date: 20250717
  Serious: No
  Sender: ACCORD
  Company Number: US-Accord-455146

PATIENT
  Sex: Female

DRUGS (22)
  1. METHOTREXATE [Suspect]
     Active Substance: METHOTREXATE
     Indication: Product used for unknown indication
  2. ACTEMRA [Concomitant]
     Active Substance: TOCILIZUMAB
  3. CETIRIZINE HYDROCHLORIDE [Concomitant]
     Active Substance: CETIRIZINE HYDROCHLORIDE
  4. CEPHALEXIN [Concomitant]
     Active Substance: CEPHALEXIN
  5. FAMOTIDINE [Concomitant]
     Active Substance: FAMOTIDINE
  6. CITALOPRAM [Concomitant]
     Active Substance: CITALOPRAM
  7. LEFLUNOMIDE [Concomitant]
     Active Substance: LEFLUNOMIDE
  8. ATORVASTATIN [Concomitant]
     Active Substance: ATORVASTATIN
  9. VITAMIN D [Concomitant]
     Active Substance: VITAMIN D NOS
  10. ALBUTEROL [Concomitant]
     Active Substance: ALBUTEROL
  11. CALCIUM [Concomitant]
     Active Substance: CALCIUM
  12. CODEINE [Concomitant]
     Active Substance: CODEINE
  13. PREDNISONE [Concomitant]
     Active Substance: PREDNISONE
  14. TENOFOVIR DISOPROXIL [Concomitant]
     Active Substance: TENOFOVIR DISOPROXIL
  15. ACETAMINOPHEN\TRAMADOL [Concomitant]
     Active Substance: ACETAMINOPHEN\TRAMADOL
  16. MUPIROCIN CALCIUM [Concomitant]
     Active Substance: MUPIROCIN CALCIUM
  17. DICLOFENAC SODIUM [Concomitant]
     Active Substance: DICLOFENAC SODIUM
  18. TACROLIMUS [Concomitant]
     Active Substance: TACROLIMUS
  19. BUDESONIDE,GLYCOPYRROLATE,FORMOTEROL FUMARATE [Concomitant]
  20. VENTOLIN [Concomitant]
     Active Substance: ALBUTEROL SULFATE
  21. PANTOPRAZOLE [Concomitant]
     Active Substance: PANTOPRAZOLE
  22. PREDNISONE [Concomitant]
     Active Substance: PREDNISONE

REACTIONS (1)
  - Palpitations [Unknown]
